FAERS Safety Report 23725698 (Version 3)
Quarter: 2024Q2

REPORT INFORMATION
  Report Type: Spontaneous
  Country: US (occurrence: US)
  Receive Date: 20240410
  Receipt Date: 20240418
  Transmission Date: 20240716
  Serious: Yes (Other)
  Sender: FDA-Public Use
  Company Number: US-ARBOR PHARMACEUTICALS, LLC-US-2023ARB004546

PATIENT
  Sex: Male
  Weight: 79.365 kg

DRUGS (5)
  1. EDARBI [Suspect]
     Active Substance: AZILSARTAN KAMEDOXOMIL
     Indication: Hypertension
     Dosage: UNK
     Route: 048
     Dates: start: 20120101
  2. EDARBI [Suspect]
     Active Substance: AZILSARTAN KAMEDOXOMIL
     Dosage: 40 MG (HALF TABLET OF 80 MG), QD
     Route: 048
     Dates: end: 2023
  3. EDARBI [Suspect]
     Active Substance: AZILSARTAN KAMEDOXOMIL
     Dosage: TOOK ANOTHER 40 MG LATER THAT DAY
     Route: 048
     Dates: start: 2023, end: 2023
  4. EDARBI [Suspect]
     Active Substance: AZILSARTAN KAMEDOXOMIL
     Dosage: 80 MG WHOLE PILL , BID
     Route: 048
     Dates: start: 2023, end: 2023
  5. EDARBI [Suspect]
     Active Substance: AZILSARTAN KAMEDOXOMIL
     Dosage: NEW PRESCRIPTION OF 40MG
     Route: 048
     Dates: start: 2023

REACTIONS (5)
  - Blood pressure increased [Recovered/Resolved]
  - Headache [Unknown]
  - Therapy non-responder [Unknown]
  - Wrong technique in product usage process [Unknown]
  - Extra dose administered [Unknown]

NARRATIVE: CASE EVENT DATE: 20230101
